FAERS Safety Report 25134776 (Version 1)
Quarter: 2025Q1

REPORT INFORMATION
  Report Type: Spontaneous
  Country: CA (occurrence: CA)
  Receive Date: 20250328
  Receipt Date: 20250328
  Transmission Date: 20250408
  Serious: Yes (Hospitalization)
  Sender: MILLICENT HOLDINGS
  Company Number: CA-Millicent Holdings Ltd.-MILL20250118

PATIENT
  Age: 66 Year
  Sex: Female

DRUGS (3)
  1. INTRAROSA [Suspect]
     Active Substance: PRASTERONE
     Indication: Vulvovaginal dryness
     Route: 067
     Dates: start: 2022
  2. INTRAROSA [Suspect]
     Active Substance: PRASTERONE
     Indication: Atrophic vulvovaginitis
  3. RINVOQ [Concomitant]
     Active Substance: UPADACITINIB
     Indication: Rheumatoid arthritis

REACTIONS (4)
  - Appendicitis [Unknown]
  - Drug ineffective [Unknown]
  - Abdominal pain lower [Unknown]
  - Off label use [Unknown]

NARRATIVE: CASE EVENT DATE: 20220101
